FAERS Safety Report 16745232 (Version 1)
Quarter: 2019Q3

REPORT INFORMATION
  Report Type: Spontaneous
  Country: None (occurrence: US)
  Receive Date: 20190827
  Receipt Date: 20190827
  Transmission Date: 20191005
  Serious: Yes (Other)
  Sender: FDA-Public Use
  Company Number: US-CARLSBAD TECHNOLOGY, INC.-2073700

PATIENT
  Age: 65 Year
  Sex: Male

DRUGS (1)
  1. FAMOTIDINE. [Suspect]
     Active Substance: FAMOTIDINE
     Route: 048
     Dates: start: 20190730, end: 20190801

REACTIONS (2)
  - Gastrooesophageal reflux disease [Recovered/Resolved]
  - Lung infection [Recovered/Resolved]

NARRATIVE: CASE EVENT DATE: 20190730
